FAERS Safety Report 10265850 (Version 1)
Quarter: 2014Q2

REPORT INFORMATION
  Report Type: Spontaneous
  Country: US (occurrence: None)
  Receive Date: 20140625
  Receipt Date: 20140625
  Transmission Date: 20141212
  Serious: Yes (Hospitalization)
  Sender: FDA-Public Use
  Company Number: None

PATIENT
  Age: 74 Year
  Sex: Male
  Weight: 79.38 kg

DRUGS (15)
  1. RANEXA [Suspect]
     Indication: ANGINA PECTORIS
     Route: 048
     Dates: start: 20140521, end: 20140527
  2. RENAXA [Concomitant]
  3. PACEMAKER [Concomitant]
  4. COOMADIN [Concomitant]
  5. LOSPERAN [Concomitant]
  6. CARVEDILOL [Concomitant]
  7. PLAVIX [Concomitant]
  8. LASIX [Concomitant]
  9. POTASSIUM [Concomitant]
  10. CARAFATE [Concomitant]
  11. ISOSOBIDE MONO [Concomitant]
  12. PRAVASTATIN [Concomitant]
  13. PRILOSEC [Concomitant]
  14. LOTAB [Concomitant]
  15. ASIPRIN [Concomitant]

REACTIONS (4)
  - Tremor [None]
  - Motor dysfunction [None]
  - Dysstasia [None]
  - Fall [None]
